FAERS Safety Report 18683767 (Version 2)
Quarter: 2021Q1

REPORT INFORMATION
  Report Type: Report from Study
  Country: None (occurrence: US)
  Receive Date: 20201230
  Receipt Date: 20210219
  Transmission Date: 20210419
  Serious: Yes (Other)
  Sender: FDA-Public Use
  Company Number: US-ABBVIE-20K-163-3706521-00

PATIENT
  Sex: Female
  Weight: 58.11 kg

DRUGS (5)
  1. PREDNISONE. [Concomitant]
     Active Substance: PREDNISONE
     Indication: RHEUMATOID ARTHRITIS
  2. HUMIRA [Suspect]
     Active Substance: ADALIMUMAB
     Indication: RHEUMATOID ARTHRITIS
     Route: 058
     Dates: start: 201808
  3. METHOTREXATE. [Concomitant]
     Active Substance: METHOTREXATE
     Indication: RHEUMATOID ARTHRITIS
  4. PEPCID [Concomitant]
     Active Substance: FAMOTIDINE
     Indication: GASTRIC DISORDER
  5. MELOXICAM. [Concomitant]
     Active Substance: MELOXICAM
     Indication: RHEUMATOID ARTHRITIS

REACTIONS (6)
  - Cerebrovascular accident [Unknown]
  - Hypoaesthesia [Not Recovered/Not Resolved]
  - Hypoaesthesia [Not Recovered/Not Resolved]
  - Aura [Recovered/Resolved]
  - Speech disorder [Not Recovered/Not Resolved]
  - Migraine [Not Recovered/Not Resolved]

NARRATIVE: CASE EVENT DATE: 2018
